FAERS Safety Report 4954519-5 (Version None)
Quarter: 2006Q1

REPORT INFORMATION
  Report Type: 
  Country: None (occurrence: None)
  Receive Date: 20060322
  Receipt Date: 20060310
  Transmission Date: 20060701
  Serious: Yes (Life-Threatening)
  Sender: FDA-Public Use
  Company Number: 2006035969

PATIENT
  Age: 29 Year
  Sex: Female

DRUGS (1)
  1. SULFASALAZINE [Suspect]
     Indication: ANKYLOSING SPONDYLITIS
     Dosage: 1 GRAM (1 D), ORAL
     Route: 048
     Dates: start: 20051001, end: 20051026

REACTIONS (4)
  - DRUG RASH WITH EOSINOPHILIA AND SYSTEMIC SYMPTOMS [None]
  - GENERAL PHYSICAL CONDITION ABNORMAL [None]
  - HEPATOCELLULAR DAMAGE [None]
  - MONONUCLEOSIS SYNDROME [None]
